FAERS Safety Report 15958251 (Version 1)
Quarter: 2019Q1

REPORT INFORMATION
  Report Type: Spontaneous
  Country: JP (occurrence: JP)
  Receive Date: 20190213
  Receipt Date: 20190213
  Transmission Date: 20190417
  Serious: Yes (Hospitalization, Other)
  Sender: FDA-Public Use
  Company Number: JP-MYLANLABS-2019M1013712

PATIENT
  Age: 81 Year
  Sex: Male

DRUGS (6)
  1. TOBRAMYCIN. [Concomitant]
     Active Substance: TOBRAMYCIN
     Indication: KERATITIS
     Route: 061
  2. AMPHOTERICIN B. [Concomitant]
     Active Substance: AMPHOTERICIN B
     Indication: KERATITIS FUNGAL
     Dosage: RECEIVED EVERY HOUR
     Route: 061
  3. CEFMENOXIME [Concomitant]
     Active Substance: CEFMENOXIME
     Indication: KERATITIS
     Route: 061
  4. PIMARICIN [Concomitant]
     Active Substance: NATAMYCIN
     Indication: KERATITIS FUNGAL
     Dosage: RECEIVED EVERY HOUR
     Route: 061
  5. LEVOFLOXACIN. [Concomitant]
     Active Substance: LEVOFLOXACIN
     Indication: KERATITIS
     Route: 061
  6. BETAMETHASONE. [Suspect]
     Active Substance: BETAMETHASONE
     Indication: KERATITIS
     Route: 061

REACTIONS (1)
  - Keratitis fungal [Recovered/Resolved]
